FAERS Safety Report 6306158-1 (Version None)
Quarter: 2009Q3

REPORT INFORMATION
  Report Type: 
  Country: None (occurrence: None)
  Receive Date: 20090810
  Receipt Date: 20090810
  Transmission Date: 20100115
  Serious: No
  Sender: FDA-Public Use
  Company Number: None

PATIENT
  Age: 48 Year
  Sex: Male
  Weight: 121.564 kg

DRUGS (1)
  1. ZICAM COLD REMEDY MATRIX [Suspect]
     Indication: NASOPHARYNGITIS
     Dosage: ONE PUMP EACH NOSTRIL 4 HOURS ENDOSINUSIAL, WHEN I HAD A COLD
     Route: 045

REACTIONS (4)
  - AGEUSIA [None]
  - ANOSMIA [None]
  - BURNING SENSATION [None]
  - FRUSTRATION [None]
